FAERS Safety Report 4841052-4 (Version None)
Quarter: 2005Q4

REPORT INFORMATION
  Report Type: 
  Country: None (occurrence: None)
  Receive Date: 20051130
  Receipt Date: 20050907
  Transmission Date: 20060501
  Serious: No
  Sender: FDA-Public Use
  Company Number: US-BRISTOL-MYERS SQUIBB COMPANY-13102991

PATIENT
  Age: 49 Year
  Sex: Female
  Weight: 82 kg

DRUGS (4)
  1. ABILIFY [Suspect]
     Indication: BIPOLAR DISORDER
     Route: 048
  2. ZOLOFT [Concomitant]
  3. LIPITOR [Concomitant]
  4. INHALERS [Concomitant]

REACTIONS (1)
  - HOT FLUSH [None]
